FAERS Safety Report 22041808 (Version 1)
Quarter: 2023Q1

REPORT INFORMATION
  Report Type: Spontaneous
  Country: CN (occurrence: CN)
  Receive Date: 20230227
  Receipt Date: 20230227
  Transmission Date: 20230417
  Serious: Yes (Death, Other)
  Sender: FDA-Public Use
  Company Number: CN-PFIZER INC-PV202300034060

PATIENT
  Sex: Male

DRUGS (9)
  1. AVIBACTAM SODIUM\CEFTAZIDIME [Suspect]
     Active Substance: AVIBACTAM SODIUM\CEFTAZIDIME
     Indication: Product used for unknown indication
     Dosage: 3 DF, QD
     Route: 042
     Dates: start: 20221228
  2. TEICOPLANIN [Concomitant]
     Active Substance: TEICOPLANIN
     Dosage: 0.2 G
  3. VANCOMYCIN HYDROCHLORIDE [Concomitant]
     Active Substance: VANCOMYCIN HYDROCHLORIDE
     Dosage: 0.5 G
  4. MOSAPRIDE CITRATE [Concomitant]
     Active Substance: MOSAPRIDE CITRATE
     Dosage: 5 MG*36S
  5. VITAMIN B12 [Concomitant]
     Active Substance: CYANOCOBALAMIN
     Dosage: 0.5 MGX10 VIALS
  6. MEROPENEM [Concomitant]
     Active Substance: MEROPENEM
     Dosage: 0.5 GX10 VIALS
  7. PROPAFENONE HYDROCHLORIDE [Concomitant]
     Active Substance: PROPAFENONE HYDROCHLORIDE
     Dosage: 10 MG: 35MGX5VIALS
  8. .ALPHA.-TOCOPHEROL [Concomitant]
     Active Substance: .ALPHA.-TOCOPHEROL
     Dosage: 0.1 G X 60 CAPSULES
  9. LIVE COMBINED BIFIDOBACTERIUM AND LACTOBACILLUS [Concomitant]
     Dosage: 0.5 GX 36 TABLETS

REACTIONS (14)
  - Neuropathy peripheral [Fatal]
  - Brain stem infarction [Fatal]
  - Pulmonary arterial hypertension [Fatal]
  - Hyperkalaemia [Fatal]
  - Acute kidney injury [Fatal]
  - Rheumatic heart disease [Fatal]
  - Acute left ventricular failure [Fatal]
  - Cardiogenic shock [Fatal]
  - Septic shock [Fatal]
  - Ventricular fibrillation [Fatal]
  - Non-compaction cardiomyopathy [Fatal]
  - Sinus tachycardia [Fatal]
  - Pneumonia [Fatal]
  - Hepatic function abnormal [Fatal]

NARRATIVE: CASE EVENT DATE: 20230208
